FAERS Safety Report 21194979 (Version 1)
Quarter: 2022Q3

REPORT INFORMATION
  Report Type: Spontaneous
  Country: US (occurrence: None)
  Receive Date: 20220809
  Receipt Date: 20220809
  Transmission Date: 20221027
  Serious: Yes (Death)
  Sender: FDA-Public Use
  Company Number: None

PATIENT
  Age: 87 Year
  Sex: Male
  Weight: 64.86 kg

DRUGS (9)
  1. XGEVA [Suspect]
     Active Substance: DENOSUMAB
     Indication: Product used for unknown indication
     Dosage: FREQUENCY : MONTHLY;?
     Route: 058
  2. CALCIUM\VITAMIN D [Concomitant]
     Active Substance: CALCIUM\VITAMIN D
  3. COMBIGAN [Concomitant]
  4. ELIGARD [Concomitant]
     Active Substance: LEUPROLIDE ACETATE
  5. LATANOPROST [Concomitant]
     Active Substance: LATANOPROST
  6. MULTIVITAMINS/MINERALS [Concomitant]
  7. NAPROXEN [Concomitant]
     Active Substance: NAPROXEN
  8. TAMSULOSIN [Concomitant]
     Active Substance: TAMSULOSIN
  9. TRAMADOL [Concomitant]

REACTIONS (1)
  - Death [None]

NARRATIVE: CASE EVENT DATE: 20220807
